FAERS Safety Report 6609634-7 (Version None)
Quarter: 2010Q1

REPORT INFORMATION
  Report Type: 
  Country: None (occurrence: None)
  Receive Date: 20100302
  Receipt Date: 20100218
  Transmission Date: 20100710
  Serious: Yes (Other)
  Sender: FDA-Public Use
  Company Number: US-BRISTOL-MYERS SQUIBB COMPANY-14984884

PATIENT
  Age: 55 Year
  Sex: Male

DRUGS (2)
  1. COUMADIN [Suspect]
  2. LOVENOX [Suspect]

REACTIONS (2)
  - OSTEOPOROSIS [None]
  - STRESS FRACTURE [None]
